FAERS Safety Report 9549272 (Version 1)
Quarter: 2013Q3

REPORT INFORMATION
  Report Type: Report from Study
  Country: CA (occurrence: CA)
  Receive Date: 20130924
  Receipt Date: 20130924
  Transmission Date: 20140515
  Serious: Yes (Other)
  Sender: FDA-Public Use
  Company Number: CA-JNJFOC-20130909630

PATIENT
  Sex: Female
  Weight: 76 kg

DRUGS (2)
  1. REMICADE [Suspect]
     Indication: CROHN^S DISEASE
     Route: 042
     Dates: start: 20120731
  2. REMICADE [Suspect]
     Indication: CROHN^S DISEASE
     Dosage: DOSE: ALSO REPORTED AS 10MG/KG
     Route: 042

REACTIONS (1)
  - Fistula [Not Recovered/Not Resolved]
